FAERS Safety Report 23242244 (Version 2)
Quarter: 2023Q4

REPORT INFORMATION
  Report Type: Spontaneous
  Country: GB (occurrence: GB)
  Receive Date: 20231129
  Receipt Date: 20231214
  Transmission Date: 20240109
  Serious: Yes (Hospitalization, Other)
  Sender: FDA-Public Use
  Company Number: GB-MYLANLABS-2023M1113909

PATIENT
  Age: 65 Year
  Sex: Male

DRUGS (1)
  1. CLOZARIL [Suspect]
     Active Substance: CLOZAPINE
     Indication: Schizophrenia
     Dosage: UNK
     Route: 048
     Dates: start: 20220425, end: 20231205

REACTIONS (6)
  - Melaena [Unknown]
  - Gastrointestinal haemorrhage [Unknown]
  - Acute coronary syndrome [Unknown]
  - Neutrophilia [Unknown]
  - Chest pain [Unknown]
  - Platelet count increased [Unknown]

NARRATIVE: CASE EVENT DATE: 20231020
